FAERS Safety Report 11071628 (Version 5)
Quarter: 2015Q3

REPORT INFORMATION
  Report Type: Report from Study
  Country: CN (occurrence: CN)
  Receive Date: 20150428
  Receipt Date: 20150702
  Transmission Date: 20151125
  Serious: Yes (Hospitalization)
  Sender: FDA-Public Use
  Company Number: CN-ROCHE-1568265

PATIENT
  Age: 56 Year
  Sex: Male
  Weight: 52 kg

DRUGS (39)
  1. AZASETRON [Concomitant]
     Active Substance: AZASETRON
     Indication: VOMITING
     Dosage: INDICATION:PREVENT VOMITING
     Route: 042
     Dates: start: 20150330, end: 20150331
  2. NIFEDIPINE EXTENDED RELEASE [Concomitant]
     Active Substance: NIFEDIPINE
     Indication: HYPERTENSION
     Route: 060
     Dates: start: 20150330, end: 20150331
  3. POLYENE PHOSPHATIDYLCHOLINE [Concomitant]
     Active Substance: PHOSPHOLIPID
     Dosage: INDICATION:LIVER PROTECTION
     Route: 042
     Dates: start: 20150402, end: 20150402
  4. LANSOPRAZOLE. [Concomitant]
     Active Substance: LANSOPRAZOLE
     Route: 042
     Dates: start: 20150402, end: 20150402
  5. LANSOPRAZOLE. [Concomitant]
     Active Substance: LANSOPRAZOLE
     Route: 042
     Dates: start: 20150420, end: 20150427
  6. DIAZEPAM. [Concomitant]
     Active Substance: DIAZEPAM
     Indication: SEDATION
     Route: 042
     Dates: start: 20150331, end: 20150331
  7. VITAMIN B6 [Concomitant]
     Active Substance: PYRIDOXINE HYDROCHLORIDE
     Dosage: INDICATION:SUPPLEMENT NUTRITION
     Route: 042
     Dates: start: 20150330, end: 20150330
  8. IRBESARTAN. [Concomitant]
     Active Substance: IRBESARTAN
     Indication: HYPERTENSION
     Route: 048
     Dates: start: 20150331, end: 20150331
  9. PERTUZUMAB [Suspect]
     Active Substance: PERTUZUMAB
     Indication: HER-2 POSITIVE GASTRIC CANCER
     Route: 042
     Dates: start: 20150331, end: 20150331
  10. CISPLATIN. [Suspect]
     Active Substance: CISPLATIN
     Indication: HER-2 POSITIVE GASTRIC CANCER
     Route: 042
     Dates: start: 20150331
  11. GLUTATHIONE [Concomitant]
     Active Substance: GLUTATHIONE
     Route: 048
     Dates: start: 20150402, end: 20150407
  12. FUROSEMIDE. [Concomitant]
     Active Substance: FUROSEMIDE
     Indication: POLYURIA
     Route: 042
     Dates: start: 20150330, end: 20150330
  13. LANSOPRAZOLE. [Concomitant]
     Active Substance: LANSOPRAZOLE
     Indication: VOMITING
     Route: 042
     Dates: start: 20150320, end: 20150324
  14. COBAMAMIDE [Concomitant]
     Active Substance: COBAMAMIDE
     Dosage: INDICATION:PREVENT LEUCOPENIA
     Route: 030
     Dates: start: 20150323, end: 20150402
  15. OMEPRAZOLE. [Concomitant]
     Active Substance: OMEPRAZOLE
     Route: 048
     Dates: start: 20150326, end: 20150330
  16. POTASSIUM CHLORIDE. [Concomitant]
     Active Substance: POTASSIUM CHLORIDE
     Indication: HYPOKALAEMIA
     Dosage: INDICATION: POTASSIUM SUPPLEMENT
     Route: 042
     Dates: start: 20150330, end: 20150331
  17. POTASSIUM CHLORIDE. [Concomitant]
     Active Substance: POTASSIUM CHLORIDE
     Route: 048
     Dates: start: 20150330, end: 20150401
  18. GLUTATHIONE [Concomitant]
     Active Substance: GLUTATHIONE
     Dosage: INDICATION:LIVER PROTECTION
     Route: 048
     Dates: start: 20150319, end: 20150322
  19. GLUTATHIONE [Concomitant]
     Active Substance: GLUTATHIONE
     Route: 048
     Dates: start: 20150330, end: 20150402
  20. GLUTATHIONE [Concomitant]
     Active Substance: GLUTATHIONE
     Route: 042
     Dates: start: 20150330, end: 20150331
  21. GLUTATHIONE [Concomitant]
     Active Substance: GLUTATHIONE
     Route: 042
     Dates: start: 20150402, end: 20150402
  22. AZASETRON [Concomitant]
     Active Substance: AZASETRON
     Indication: VOMITING
     Dosage: INDICATION:PREVENT VOMITING
     Route: 042
     Dates: start: 20150424, end: 20150425
  23. CHYMOTRYPSIN [Concomitant]
     Active Substance: CHYMOTRYPSIN
     Dosage: DOSE:4000 UNITS, INDICATION:ANTI-INFLAMMATORY
     Route: 042
     Dates: start: 20150402, end: 20150402
  24. GLYCERIN ENEMA [Concomitant]
     Dosage: INDICATION: LUBRICATE THE INTESTINES
     Route: 054
     Dates: start: 20150330, end: 20150330
  25. ESTAZOLAM. [Concomitant]
     Active Substance: ESTAZOLAM
     Dosage: INDICATION:IMPROVE SLEEP
     Route: 048
     Dates: start: 20150318, end: 20150402
  26. GLUTATHIONE [Concomitant]
     Active Substance: GLUTATHIONE
     Route: 042
     Dates: start: 20150320, end: 20150324
  27. LANSOPRAZOLE. [Concomitant]
     Active Substance: LANSOPRAZOLE
     Dosage: INDICATION: PROTECTING GASTRIC MUCOSA
     Route: 042
     Dates: start: 20150331, end: 20150331
  28. VITAMIN C [Concomitant]
     Active Substance: ASCORBIC ACID
     Dosage: INDICATION:SUPPLEMENT NUTRITION
     Route: 042
     Dates: start: 20150330, end: 20150330
  29. SODIUM CHLORIDE. [Concomitant]
     Active Substance: SODIUM CHLORIDE
     Dosage: DRUG REPORTED:CONCENTRATED SODIUM CHLORIDE
     Route: 050
     Dates: start: 20150420, end: 20150427
  30. FUROSEMIDE. [Concomitant]
     Active Substance: FUROSEMIDE
     Indication: POLYURIA
     Dosage: SELECT IF ONGOING=NO
     Route: 042
     Dates: start: 20150424, end: 20150424
  31. CAPECITABINE. [Suspect]
     Active Substance: CAPECITABINE
     Indication: HER-2 POSITIVE GASTRIC CANCER
     Dosage: MOST RECENT DOSE WAS ADMINISTERED ON 14/APR/2015
     Route: 048
     Dates: start: 20150331
  32. OMEPRAZOLE. [Concomitant]
     Active Substance: OMEPRAZOLE
     Route: 042
     Dates: start: 20150330, end: 20150330
  33. LACTULOSE. [Concomitant]
     Active Substance: LACTULOSE
     Dosage: INDICATION: RELAXING BOWEL
     Route: 048
     Dates: start: 20150330, end: 20150330
  34. DIPHENHYDRAMINE. [Concomitant]
     Active Substance: DIPHENHYDRAMINE
     Dosage: INDICATION:ALLERGY PREVENTION
     Route: 042
     Dates: start: 20150331, end: 20150331
  35. HUMAN SERUM ALBUMIN [Concomitant]
     Active Substance: ALBUMIN (HUMAN)
     Indication: HYPOPROTEINAEMIA
     Route: 042
     Dates: start: 20150421, end: 20150426
  36. TRASTUZUMAB [Suspect]
     Active Substance: TRASTUZUMAB
     Indication: HER-2 POSITIVE GASTRIC CANCER
     Dosage: 8 MG/KG INITIAL LOADING DOSE ON DAY 1
     Route: 042
     Dates: start: 20150331, end: 20150331
  37. GLYCERIN ENEMA [Concomitant]
     Dosage: INDICATION-RELAXING BOWEL
     Route: 054
     Dates: start: 20150318, end: 20150327
  38. GLUTATHIONE [Concomitant]
     Active Substance: GLUTATHIONE
     Route: 048
     Dates: start: 20150325, end: 20150328
  39. DIAZEPAM. [Concomitant]
     Active Substance: DIAZEPAM
     Indication: SEDATION
     Route: 030
     Dates: start: 20150325, end: 20150325

REACTIONS (1)
  - Lung infection [Recovered/Resolved]

NARRATIVE: CASE EVENT DATE: 20150421
